FAERS Safety Report 16039333 (Version 3)
Quarter: 2019Q2

REPORT INFORMATION
  Report Type: Spontaneous
  Country: JP (occurrence: JP)
  Receive Date: 20190306
  Receipt Date: 20190515
  Transmission Date: 20190711
  Serious: Yes (Other)
  Sender: FDA-Public Use
  Company Number: JP-BRISTOL-MYERS SQUIBB COMPANY-BMS-2019-022435

PATIENT
  Age: 37 Year
  Sex: Female
  Weight: 49.6 kg

DRUGS (2)
  1. OPDIVO [Suspect]
     Active Substance: NIVOLUMAB
     Indication: PRODUCT USED FOR UNKNOWN INDICATION
     Dosage: 180 MILLIGRAM
     Route: 041
     Dates: start: 20180502
  2. OPDIVO [Suspect]
     Active Substance: NIVOLUMAB
     Indication: NON-SMALL CELL LUNG CANCER
     Dosage: 180 MG
     Route: 041
     Dates: start: 20180228

REACTIONS (2)
  - Immune thrombocytopenic purpura [Recovered/Resolved]
  - Brain oedema [Unknown]

NARRATIVE: CASE EVENT DATE: 20180328
